FAERS Safety Report 9451426 (Version 1)
Quarter: 2013Q3

REPORT INFORMATION
  Report Type: Spontaneous
  Country: ZA (occurrence: ZA)
  Receive Date: 20130809
  Receipt Date: 20130809
  Transmission Date: 20140515
  Serious: Yes (Other)
  Sender: FDA-Public Use
  Company Number: PHHY2013ZA083318

PATIENT
  Age: 73 Year
  Sex: Male

DRUGS (4)
  1. METFORMIN SANDOZ [Suspect]
     Indication: DIABETES MELLITUS
     Dosage: 850 MG, BID
     Route: 048
  2. ASPAVOR [Suspect]
     Dosage: 10 MG, UNK
     Route: 048
  3. PHARMAPRESS//ENALAPRIL MALEATE [Suspect]
     Indication: HYPERTENSION
  4. PURICOS [Suspect]
     Indication: GOUT

REACTIONS (2)
  - Hiatus hernia [Recovered/Resolved]
  - Dyspepsia [Recovering/Resolving]
